FAERS Safety Report 21905899 (Version 1)
Quarter: 2023Q1

REPORT INFORMATION
  Report Type: Spontaneous
  Country: RU (occurrence: RU)
  Receive Date: 20230124
  Receipt Date: 20230124
  Transmission Date: 20230418
  Serious: Yes (Other)
  Sender: FDA-Public Use
  Company Number: RU-009507513-2301RUS006986

PATIENT
  Age: 71 Year
  Sex: Male

DRUGS (11)
  1. PEMBROLIZUMAB [Suspect]
     Active Substance: PEMBROLIZUMAB
     Dosage: 4 COURSES. 200 MG ON DAY 1
     Dates: start: 20220912, end: 20221121
  2. PEMBROLIZUMAB [Suspect]
     Active Substance: PEMBROLIZUMAB
     Dosage: 200 MG ON DAY 1. 1ST COURSE. MAINTENANCE
     Dates: start: 20221216, end: 20221216
  3. PEMETREXED [Suspect]
     Active Substance: PEMETREXED
     Dosage: 500 MG/M2 ON DAY 1. 4 COURSES
     Dates: start: 20220912, end: 20221121
  4. PEMETREXED [Suspect]
     Active Substance: PEMETREXED
     Dosage: 500 MG/M2 ON DAY 1. 1ST COURSE. MAINTENANCE
     Dates: start: 20221216, end: 20221216
  5. CARBOPLATIN [Suspect]
     Active Substance: CARBOPLATIN
     Dosage: 4 COURSES. AUC 5 ON DAY 1
     Dates: start: 20220912, end: 20221121
  6. ENALAPRIL [Concomitant]
     Active Substance: ENALAPRIL
     Dosage: 1 TABLET 2 TIMES A DAY
     Route: 048
  7. BISOPROLOL [Concomitant]
     Active Substance: BISOPROLOL
     Dosage: 1 TAB. IN THE MORNING AND 1/2 TAB. IN THE EVENING
  8. ASPIRIN [Concomitant]
     Active Substance: ASPIRIN
     Dosage: 1 TABLET
  9. ATORVASTATIN [Concomitant]
     Active Substance: ATORVASTATIN
     Dosage: 1 TABLET
  10. AMLODIPINE [Concomitant]
     Active Substance: AMLODIPINE BESYLATE
     Dosage: 1 TABLET
  11. GLICLAZIDE [Concomitant]
     Active Substance: GLICLAZIDE
     Dosage: 30 MILLIGRAM IN THE MORNING

REACTIONS (6)
  - Extranodal marginal zone B-cell lymphoma (MALT type) [Unknown]
  - Gastric ulcer [Unknown]
  - Helicobacter gastritis [Unknown]
  - Intestinal metaplasia [Unknown]
  - Gastrointestinal scarring [Unknown]
  - Gastritis [Unknown]

NARRATIVE: CASE EVENT DATE: 20230109
